FAERS Safety Report 5510566-6 (Version None)
Quarter: 2007Q4

REPORT INFORMATION
  Report Type: 
  Country: None (occurrence: None)
  Receive Date: 20071108
  Receipt Date: 20071031
  Transmission Date: 20080405
  Serious: Yes (Hospitalization)
  Sender: FDA-Public Use
  Company Number: ES-GENENTECH-250887

PATIENT
  Age: 65 Year
  Sex: Female

DRUGS (5)
  1. AVASTIN [Suspect]
     Indication: BREAST CANCER
     Dosage: 15 MG/KG, Q3W
  2. DOCETAXEL [Suspect]
     Indication: BREAST CANCER
     Dosage: 100 MG/M2, Q3W
  3. DEXAMETHASONE [Concomitant]
     Indication: PREMEDICATION
  4. DIPHENHYDRAMINE HCL [Concomitant]
     Indication: PREMEDICATION
  5. RANITIDINE [Concomitant]
     Indication: PREMEDICATION

REACTIONS (1)
  - INTERSTITIAL LUNG DISEASE [None]
